FAERS Safety Report 26156661 (Version 1)
Quarter: 2025Q4

REPORT INFORMATION
  Report Type: Report from Study
  Country: US (occurrence: US)
  Receive Date: 20251215
  Receipt Date: 20251215
  Transmission Date: 20260117
  Serious: Yes (Hospitalization, Other)
  Sender: ALEXION PHARMACEUTICALS
  Company Number: US-AstraZeneca-CH-01012810A

PATIENT
  Age: 54 Year
  Sex: Female

DRUGS (1)
  1. CAPIVASERTIB [Suspect]
     Active Substance: CAPIVASERTIB
     Indication: Breast cancer female
     Route: 061
     Dates: start: 202510

REACTIONS (7)
  - Diarrhoea [Unknown]
  - Nausea [Unknown]
  - Gastrointestinal disorder [Unknown]
  - Vomiting [Unknown]
  - Dysphagia [Unknown]
  - Hypotension [Unknown]
  - Oxygen saturation decreased [Unknown]
